FAERS Safety Report 5626419-9 (Version None)
Quarter: 2008Q1

REPORT INFORMATION
  Report Type: 
  Country: None (occurrence: None)
  Receive Date: 20080214
  Receipt Date: 20080208
  Transmission Date: 20080703
  Serious: Yes (Death, Other)
  Sender: FDA-Public Use
  Company Number: HQWYE971217AUG05

PATIENT
  Sex: Female
  Weight: 68.1 kg

DRUGS (3)
  1. PREMARIN [Suspect]
     Indication: HORMONE REPLACEMENT THERAPY
     Dosage: .625 MG EVERY
     Route: 048
     Dates: start: 19750101, end: 20000401
  2. VALPROATE SODIUM [Concomitant]
  3. LORAZEPAM [Concomitant]

REACTIONS (1)
  - OVARIAN CANCER METASTATIC [None]
